FAERS Safety Report 20332419 (Version 1)
Quarter: 2022Q1

REPORT INFORMATION
  Report Type: Spontaneous
  Country: ZA (occurrence: ZA)
  Receive Date: 20220113
  Receipt Date: 20220113
  Transmission Date: 20220423
  Serious: Yes (Death)
  Sender: FDA-Public Use
  Company Number: ZA-NOVARTISPH-NVSC2022ZA006127

PATIENT
  Age: 65 Year
  Sex: Female

DRUGS (1)
  1. RIBOCICLIB [Suspect]
     Active Substance: RIBOCICLIB
     Indication: Breast cancer metastatic
     Dosage: 600 MG, QD
     Route: 048
     Dates: start: 20211210, end: 20211231

REACTIONS (7)
  - Hepatotoxicity [Fatal]
  - Platelet count decreased [Fatal]
  - Oedema [Fatal]
  - Hepatic function abnormal [Fatal]
  - Metastases to liver [Fatal]
  - Metastases to bone [Fatal]
  - Metastases to central nervous system [Fatal]

NARRATIVE: CASE EVENT DATE: 20211214
